FAERS Safety Report 6480466-6 (Version None)
Quarter: 2009Q4

REPORT INFORMATION
  Report Type: 
  Country: None (occurrence: None)
  Receive Date: 20091203
  Receipt Date: 20091130
  Transmission Date: 20100525
  Serious: Yes (Hospitalization)
  Sender: FDA-Public Use
  Company Number: 2009SP038741

PATIENT
  Age: 61 Year
  Sex: Female

DRUGS (2)
  1. PEG-INTRON [Suspect]
     Indication: HEPATITIS C
     Dates: end: 20090901
  2. REBETOL [Suspect]
     Indication: HEPATITIS C
     Dates: end: 20090901

REACTIONS (2)
  - BLOOD SODIUM DECREASED [None]
  - VOMITING [None]
